FAERS Safety Report 5149131-1 (Version None)
Quarter: 2006Q4

REPORT INFORMATION
  Report Type: 
  Country: None (occurrence: None)
  Receive Date: 20061113
  Receipt Date: 20060803
  Transmission Date: 20070319
  Serious: No
  Sender: FDA-Public Use
  Company Number: US-GLAXOSMITHKLINE-A0615074A

PATIENT
  Age: 86 Year
  Sex: Male

DRUGS (6)
  1. COREG [Suspect]
     Indication: DRUG USE FOR UNKNOWN INDICATION
     Dosage: 12.5MG TWICE PER DAY
     Route: 048
     Dates: start: 20041102
  2. LASIX [Concomitant]
  3. ASPIRIN [Concomitant]
  4. ZOCOR [Concomitant]
  5. COZAAR [Concomitant]
  6. IMDUR [Concomitant]

REACTIONS (3)
  - DYSPNOEA [None]
  - FATIGUE [None]
  - WEIGHT INCREASED [None]
